FAERS Safety Report 14927135 (Version 1)
Quarter: 2018Q2

REPORT INFORMATION
  Report Type: Spontaneous
  Country: SA (occurrence: SA)
  Receive Date: 20180523
  Receipt Date: 20180523
  Transmission Date: 20180711
  Serious: Yes (Life-Threatening, Other)
  Sender: FDA-Public Use
  Company Number: SA-ROCHE-2126928

PATIENT
  Age: 33 Year
  Sex: Female

DRUGS (1)
  1. MABTHERA [Suspect]
     Active Substance: RITUXIMAB
     Indication: DERMATOMYOSITIS
     Dosage: 1000 MG DISSOLVED IN NORMAL SALINE IV FOR 10 HOURS
     Route: 042
     Dates: start: 20180515, end: 20180515

REACTIONS (3)
  - Dyspnoea [Recovered/Resolved]
  - Bradyarrhythmia [Recovered/Resolved]
  - Bradycardia [Recovered/Resolved]

NARRATIVE: CASE EVENT DATE: 20180515
